FAERS Safety Report 25253662 (Version 7)
Quarter: 2025Q3

REPORT INFORMATION
  Report Type: Spontaneous
  Country: US (occurrence: US)
  Receive Date: 20250430
  Receipt Date: 20250807
  Transmission Date: 20251021
  Serious: No
  Sender: BIOGEN
  Company Number: US-BIOGEN-2025BI01308575

PATIENT
  Sex: Female

DRUGS (4)
  1. VUMERITY [Suspect]
     Active Substance: DIROXIMEL FUMARATE
     Indication: Multiple sclerosis
     Route: 050
     Dates: start: 20250421, end: 20250427
  2. VUMERITY [Suspect]
     Active Substance: DIROXIMEL FUMARATE
     Route: 050
     Dates: start: 20250429
  3. TIZANIDINE HYDROCHLORIDE [Concomitant]
     Active Substance: TIZANIDINE HYDROCHLORIDE
     Route: 050
  4. BACLOFEN [Concomitant]
     Active Substance: BACLOFEN
     Route: 050

REACTIONS (11)
  - Product dose omission in error [Unknown]
  - Faeces soft [Not Recovered/Not Resolved]
  - Nasopharyngitis [Unknown]
  - Dysphagia [Unknown]
  - Increased appetite [Unknown]
  - Skin exfoliation [Unknown]
  - Acne pustular [Unknown]
  - Abdominal discomfort [Recovered/Resolved]
  - Hypoaesthesia [Recovered/Resolved]
  - Flushing [Not Recovered/Not Resolved]
  - Pruritus [Unknown]

NARRATIVE: CASE EVENT DATE: 20250101
